FAERS Safety Report 7619124-0 (Version None)
Quarter: 2011Q3

REPORT INFORMATION
  Report Type: 
  Country: None (occurrence: None)
  Receive Date: 20110718
  Receipt Date: 20110713
  Transmission Date: 20111222
  Serious: Yes (Death, Other)
  Sender: FDA-Public Use
  Company Number: BR-ASTRAZENECA-2011SE41777

PATIENT
  Age: 84 Year
  Sex: Male
  Weight: 57 kg

DRUGS (3)
  1. SEROQUEL [Suspect]
     Indication: PARKINSON'S DISEASE
     Route: 048
     Dates: start: 20100101
  2. LOSARTAN [Concomitant]
     Indication: HYPERTENSION
     Dosage: DAILY
     Route: 048
     Dates: start: 20090101
  3. SEROQUEL [Suspect]
     Indication: INSOMNIA
     Route: 048
     Dates: start: 20100101

REACTIONS (3)
  - DYSPNOEA [None]
  - DEATH [None]
  - OFF LABEL USE [None]
